FAERS Safety Report 15999738 (Version 4)
Quarter: 2019Q2

REPORT INFORMATION
  Report Type: Spontaneous
  Country: US (occurrence: US)
  Receive Date: 20190225
  Receipt Date: 20190522
  Transmission Date: 20190711
  Serious: No
  Sender: FDA-Public Use
  Company Number: US-PFIZER INC-2019081187

PATIENT
  Age: 59 Year
  Sex: Male

DRUGS (2)
  1. EUCRISA [Suspect]
     Active Substance: CRISABOROLE
     Dosage: UNK, 2X/DAY (APPLY TO AFFECTED AREAS TWICE A DAY (BID) SPARINGLY)
     Route: 061
     Dates: start: 20180430, end: 201903
  2. EUCRISA [Suspect]
     Active Substance: CRISABOROLE
     Indication: PSORIASIS
     Dosage: UNK, 2X/DAY (THIN LAYER TO AFFECTED AREA/SKIN)
     Route: 061
     Dates: start: 2018, end: 20190301

REACTIONS (7)
  - Product use in unapproved indication [Unknown]
  - Burning sensation [Unknown]
  - Off label use [Unknown]
  - Skin exfoliation [Unknown]
  - Application site pain [Recovered/Resolved]
  - Application site erythema [Recovered/Resolved]
  - Erythema [Unknown]

NARRATIVE: CASE EVENT DATE: 2018
